FAERS Safety Report 4919876-4 (Version None)
Quarter: 2006Q1

REPORT INFORMATION
  Report Type: 
  Country: None (occurrence: None)
  Receive Date: 20060223
  Receipt Date: 20060215
  Transmission Date: 20060701
  Serious: Yes (Hospitalization, Other)
  Sender: FDA-Public Use
  Company Number: US-JNJFOC-20060204240

PATIENT
  Sex: Male
  Weight: 108.86 kg

DRUGS (13)
  1. DURAGESIC-100 [Suspect]
     Route: 062
  2. DURAGESIC-100 [Suspect]
     Route: 062
  3. DURAGESIC-100 [Suspect]
     Route: 062
  4. VALIUM [Concomitant]
     Route: 048
  5. COUMADIN [Concomitant]
     Indication: ANTICOAGULANT THERAPY
     Route: 048
  6. ALLEGRA [Concomitant]
     Route: 048
  7. ALLEGRA [Concomitant]
     Route: 048
  8. TRICOR [Concomitant]
     Route: 048
  9. RANITIDINE [Concomitant]
     Route: 048
  10. AMBIEN [Concomitant]
     Indication: SLEEP DISORDER THERAPY
     Dosage: 10 MG, AT BEDTIME
     Route: 048
  11. PAXIL [Concomitant]
     Route: 048
  12. BUSPAR [Concomitant]
     Route: 048
  13. IMITREX [Concomitant]
     Indication: MIGRAINE
     Dosage: 100 MG, AS NEEDED
     Route: 048

REACTIONS (3)
  - BLOOD URINE PRESENT [None]
  - HAEMORRHAGE [None]
  - THYROID DISORDER [None]
